FAERS Safety Report 7618706-X (Version None)
Quarter: 2011Q3

REPORT INFORMATION
  Report Type: 
  Country: None (occurrence: None)
  Receive Date: 20110718
  Receipt Date: 20110706
  Transmission Date: 20111222
  Serious: Yes (Hospitalization)
  Sender: FDA-Public Use
  Company Number: US-ELI_LILLY_AND_COMPANY-US201011006950

PATIENT
  Sex: Female

DRUGS (21)
  1. TRAMADOL HCL [Concomitant]
  2. ASPIRIN [Concomitant]
     Dosage: 325 MG, QD
  3. SUPER B COMPLEX [Concomitant]
  4. LOVAZA [Concomitant]
  5. L-ARGININE                         /00126102/ [Concomitant]
  6. NAPROXEN [Concomitant]
  7. L-CARNITINE [Concomitant]
  8. TURMERIC [Concomitant]
  9. CYMBALTA [Concomitant]
  10. VENTOLIN                                /SCH/ [Concomitant]
     Dosage: UNK, PRN
  11. METAMUCIL-2 [Concomitant]
  12. VITAMIN D [Concomitant]
  13. FLAXSEED OIL [Concomitant]
  14. FORTEO [Suspect]
     Dosage: 20 UG, QD
  15. VITAMIN E [Concomitant]
  16. FORTEO [Suspect]
     Indication: OSTEOPOROSIS
     Dosage: 20 UG, DAILY (1/D)
     Dates: start: 20100901
  17. CALCIUM W/VITAMIN D NOS [Concomitant]
  18. L-LYSINE [Concomitant]
  19. ASCORBIC ACID [Concomitant]
  20. CRANBERRY [Concomitant]
  21. HYDROCODONE [Concomitant]

REACTIONS (21)
  - IMPAIRED HEALING [None]
  - FATIGUE [None]
  - FEELING ABNORMAL [None]
  - OSTEONECROSIS [None]
  - ESCHERICHIA INFECTION [None]
  - NAUSEA [None]
  - ABDOMINAL DISCOMFORT [None]
  - ARTHRALGIA [None]
  - INFLAMMATION [None]
  - OEDEMA PERIPHERAL [None]
  - SOMNOLENCE [None]
  - RETCHING [None]
  - EXOSTOSIS [None]
  - WEIGHT BEARING DIFFICULTY [None]
  - INSOMNIA [None]
  - DIZZINESS [None]
  - ASTHENIA [None]
  - MENTAL IMPAIRMENT [None]
  - GAIT DISTURBANCE [None]
  - MALAISE [None]
  - POSTOPERATIVE WOUND INFECTION [None]
